FAERS Safety Report 6266199-X (Version None)
Quarter: 2009Q3

REPORT INFORMATION
  Report Type: 
  Country: None (occurrence: None)
  Receive Date: 20090713
  Receipt Date: 20090610
  Transmission Date: 20100115
  Serious: No
  Sender: FDA-Public Use
  Company Number: US-BAYER-200911800BCC

PATIENT
  Age: 79 Year
  Sex: Female
  Weight: 67 kg

DRUGS (7)
  1. ALEVE [Suspect]
     Indication: PAIN IN EXTREMITY
     Dosage: TOTAL DAILY DOSE: 220 MG  UNIT DOSE: 220 MG
     Route: 048
     Dates: start: 20090609, end: 20090609
  2. ALEVE [Suspect]
     Dosage: TOTAL DAILY DOSE: 440 MG  UNIT DOSE: 220 MG
     Route: 048
     Dates: start: 20090610
  3. NORVASC [Concomitant]
     Route: 065
  4. LEVOTHYROXINE SODIUM [Concomitant]
     Route: 065
  5. PROZAC [Concomitant]
     Route: 065
  6. PRILOSEC [Concomitant]
     Route: 065
  7. LOMOTIL [Concomitant]
     Route: 065

REACTIONS (1)
  - PAIN IN EXTREMITY [None]
